FAERS Safety Report 20802744 (Version 1)
Quarter: 2022Q2

REPORT INFORMATION
  Report Type: Spontaneous
  Country: US (occurrence: US)
  Receive Date: 20220509
  Receipt Date: 20220509
  Transmission Date: 20220721
  Serious: No
  Sender: FDA-Public Use
  Company Number: US-HORIZON THERAPEUTICS-HZN-2021-002155

PATIENT
  Sex: Female

DRUGS (1)
  1. DUEXIS [Suspect]
     Active Substance: FAMOTIDINE\IBUPROFEN
     Indication: Product used for unknown indication
     Dosage: 800 MG/ 26.6 MG, 1 PO BID WITH FOOD
     Route: 048

REACTIONS (2)
  - Product supply issue [Unknown]
  - Product dose omission issue [Unknown]
